FAERS Safety Report 19325139 (Version 1)
Quarter: 2021Q2

REPORT INFORMATION
  Report Type: Spontaneous
  Country: US (occurrence: US)
  Receive Date: 20210528
  Receipt Date: 20210528
  Transmission Date: 20210717
  Serious: No
  Sender: FDA-Public Use
  Company Number: NVSC2021US112606

PATIENT
  Sex: Female

DRUGS (1)
  1. TACROLIMUS. [Suspect]
     Active Substance: TACROLIMUS
     Indication: PRODUCT USED FOR UNKNOWN INDICATION
     Dosage: 0.1 %, BID
     Route: 065

REACTIONS (5)
  - Peripheral swelling [Unknown]
  - Rash macular [Unknown]
  - Fluid retention [Unknown]
  - Breast tenderness [Unknown]
  - Lymphadenitis [Unknown]
